FAERS Safety Report 21016869 (Version 4)
Quarter: 2023Q1

REPORT INFORMATION
  Report Type: Spontaneous
  Country: JP (occurrence: JP)
  Receive Date: 20220628
  Receipt Date: 20230308
  Transmission Date: 20230417
  Serious: Yes (Hospitalization, Disabling, Other)
  Sender: FDA-Public Use
  Company Number: JP-TAKEDA-2022TJP059908

PATIENT

DRUGS (1)
  1. ZEJULA [Suspect]
     Active Substance: NIRAPARIB
     Indication: Ovarian cancer recurrent
     Dosage: 100 MILLIGRAM, QD
     Route: 048
     Dates: start: 20211203, end: 20220616

REACTIONS (3)
  - Diarrhoea [Recovered/Resolved]
  - Ovarian cancer [Not Recovered/Not Resolved]
  - Gastroenteritis radiation [Not Recovered/Not Resolved]

NARRATIVE: CASE EVENT DATE: 20211203
